FAERS Safety Report 17283487 (Version 1)
Quarter: 2020Q1

REPORT INFORMATION
  Report Type: Spontaneous
  Country: US (occurrence: US)
  Receive Date: 20200117
  Receipt Date: 20200117
  Transmission Date: 20200409
  Serious: Yes (Hospitalization)
  Sender: FDA-Public Use
  Company Number: None

PATIENT
  Sex: Female

DRUGS (5)
  1. FOLIC ACID TAB 1 MG [Concomitant]
  2. METHOTREXATE TAB 2.5 MG [Concomitant]
  3. PREDNISONE CON 5 MG/ML [Concomitant]
  4. HYDROCO APAP TAB 10-325 MG [Concomitant]
  5. ENBREL [Suspect]
     Active Substance: ETANERCEPT
     Indication: RHEUMATOID ARTHRITIS
     Route: 058
     Dates: start: 20170105, end: 20191205

REACTIONS (1)
  - Malignant melanoma [None]
